FAERS Safety Report 24164539 (Version 2)
Quarter: 2024Q4

REPORT INFORMATION
  Report Type: Report from Study
  Country: US (occurrence: US)
  Receive Date: 20240801
  Receipt Date: 20241004
  Transmission Date: 20250115
  Serious: No
  Sender: ALEXION PHARMACEUTICALS
  Company Number: US-AstraZeneca-CH-00671366A

PATIENT
  Age: 86 Year

DRUGS (8)
  1. ULTOMIRIS [Suspect]
     Active Substance: RAVULIZUMAB-CWVZ
     Indication: Myasthenia gravis
     Dosage: UNK
     Route: 065
  2. ULTOMIRIS [Suspect]
     Active Substance: RAVULIZUMAB-CWVZ
     Dosage: UNK
  3. ULTOMIRIS [Suspect]
     Active Substance: RAVULIZUMAB-CWVZ
     Dosage: UNK
     Route: 065
  4. ULTOMIRIS [Suspect]
     Active Substance: RAVULIZUMAB-CWVZ
     Dosage: UNK
  5. SYNVISC [Suspect]
     Active Substance: HYLAN G-F 20
     Dosage: UNK
     Route: 065
  6. SYNVISC [Suspect]
     Active Substance: HYLAN G-F 20
     Dosage: UNK
  7. SYNVISC [Suspect]
     Active Substance: HYLAN G-F 20
     Dosage: UNK
     Route: 065
  8. SYNVISC [Suspect]
     Active Substance: HYLAN G-F 20
     Dosage: UNK

REACTIONS (3)
  - Arthralgia [Recovered/Resolved]
  - Gait disturbance [Unknown]
  - Malaise [Unknown]
